FAERS Safety Report 4833770-9 (Version None)
Quarter: 2005Q4

REPORT INFORMATION
  Report Type: 
  Country: None (occurrence: None)
  Receive Date: 20051118
  Receipt Date: 20051118
  Transmission Date: 20060501
  Serious: Yes (Death)
  Sender: FDA-Public Use
  Company Number: None

PATIENT
  Age: 3 Year
  Sex: Female
  Weight: 15.8759 kg

DRUGS (3)
  1. TAMIFLU [Suspect]
     Indication: INFLUENZA
     Dates: start: 20040127, end: 20040202
  2. TYLENOL [Concomitant]
  3. IBUPROFEN [Concomitant]

REACTIONS (4)
  - MENTAL STATUS CHANGES [None]
  - PNEUMONIA STREPTOCOCCAL [None]
  - RESPIRATORY ARREST [None]
  - SUDDEN DEATH [None]
